FAERS Safety Report 5984190-5 (Version None)
Quarter: 2008Q4

REPORT INFORMATION
  Report Type: 
  Country: None (occurrence: None)
  Receive Date: 20081208
  Receipt Date: 20081031
  Transmission Date: 20090506
  Serious: Yes (Hospitalization)
  Sender: FDA-Public Use
  Company Number: US-AMGEN-QUU303591

PATIENT
  Sex: Male
  Weight: 222 kg

DRUGS (7)
  1. ENBREL [Suspect]
     Indication: PSORIASIS
     Route: 058
     Dates: start: 20050215, end: 20080528
  2. ACTOS [Concomitant]
  3. DIABETA [Concomitant]
  4. METFORMIN HCL [Concomitant]
  5. INSULIN [Concomitant]
  6. COUMADIN [Concomitant]
  7. BYETTA [Concomitant]

REACTIONS (1)
  - ACUTE PROMYELOCYTIC LEUKAEMIA [None]
